FAERS Safety Report 9742371 (Version 2)
Quarter: 2014Q2

REPORT INFORMATION
  Report Type: Spontaneous
  Country: FR (occurrence: FR)
  Receive Date: 20131210
  Receipt Date: 20140523
  Transmission Date: 20141212
  Serious: Yes (Hospitalization)
  Sender: FDA-Public Use
  Company Number: FR-JNJFOC-20131204526

PATIENT
  Age: 68 Year
  Sex: Male

DRUGS (8)
  1. IXPRIM [Suspect]
     Indication: INFLAMMATORY PAIN
     Route: 048
     Dates: start: 20131015, end: 20131015
  2. NEURONTIN [Concomitant]
     Indication: NEURALGIA
     Route: 048
  3. GLUCOPHAGE [Concomitant]
     Indication: DIABETES MELLITUS
     Route: 048
  4. GLIBENESE [Concomitant]
     Indication: DIABETES MELLITUS
     Route: 048
  5. LASILIX [Concomitant]
     Indication: PRODUCT USED FOR UNKNOWN INDICATION
     Route: 048
  6. DOLIPRANE [Concomitant]
     Indication: PRODUCT USED FOR UNKNOWN INDICATION
     Route: 048
  7. INEXIUM [Concomitant]
     Indication: PRODUCT USED FOR UNKNOWN INDICATION
     Route: 048
  8. UVEDOSE [Concomitant]
     Indication: PRODUCT USED FOR UNKNOWN INDICATION
     Dosage: QUARTERLY
     Route: 048

REACTIONS (1)
  - Vascular purpura [Recovered/Resolved]
